FAERS Safety Report 25579753 (Version 1)
Quarter: 2025Q3

REPORT INFORMATION
  Report Type: Spontaneous
  Country: US (occurrence: US)
  Receive Date: 20250718
  Receipt Date: 20250718
  Transmission Date: 20251020
  Serious: No
  Sender: NOVO NORDISK
  Company Number: US-NOVOPROD-1292575

PATIENT
  Age: 70 Year
  Sex: Female

DRUGS (1)
  1. WEGOVY [Suspect]
     Active Substance: SEMAGLUTIDE
     Indication: Product used for unknown indication
     Route: 058
     Dates: start: 20240901

REACTIONS (10)
  - COVID-19 [Unknown]
  - Food craving [Unknown]
  - Gastrointestinal pain [Unknown]
  - Decreased appetite [Unknown]
  - Abdominal discomfort [Unknown]
  - Constipation [Unknown]
  - Nausea [Unknown]
  - Product communication issue [Unknown]
  - Off label use [Unknown]
  - Wrong technique in product usage process [Unknown]

NARRATIVE: CASE EVENT DATE: 20240903
